FAERS Safety Report 24006260 (Version 1)
Quarter: 2024Q2

REPORT INFORMATION
  Report Type: Spontaneous
  Country: KG (occurrence: KG)
  Receive Date: 20240624
  Receipt Date: 20240624
  Transmission Date: 20240715
  Serious: Yes (Death)
  Sender: FDA-Public Use
  Company Number: KG-INCYTE CORPORATION-2024IN006619

PATIENT
  Sex: Male

DRUGS (1)
  1. ICLUSIG [Suspect]
     Active Substance: PONATINIB\PONATINIB HYDROCHLORIDE
     Indication: Chronic myeloid leukaemia
     Dosage: 30 MILLIGRAM
     Route: 065

REACTIONS (1)
  - Disease complication [Fatal]
